FAERS Safety Report 23941424 (Version 1)
Quarter: 2024Q2

REPORT INFORMATION
  Report Type: Spontaneous
  Country: BR (occurrence: BR)
  Receive Date: 20240605
  Receipt Date: 20240605
  Transmission Date: 20240715
  Serious: Yes (Other)
  Sender: FDA-Public Use
  Company Number: BR-002147023-NVSC2024BR086266

PATIENT
  Age: 25 Year
  Sex: Female
  Weight: 52 kg

DRUGS (8)
  1. COSENTYX [Suspect]
     Active Substance: SECUKINUMAB
     Indication: Psoriasis
     Dosage: UNK (300 MG / 2 ML, 1 AMPOULE A MONTH)
     Route: 058
     Dates: start: 20231203, end: 20240403
  2. COSENTYX [Suspect]
     Active Substance: SECUKINUMAB
     Dosage: UNK (300 MG / 2 ML, 1 AMPOULE A MONTH)
     Route: 058
     Dates: start: 20231203, end: 20240403
  3. COSENTYX [Suspect]
     Active Substance: SECUKINUMAB
     Dosage: UNK (300 MG / 2 ML, 1 AMPOULE A MONTH)
     Route: 058
     Dates: start: 20231203, end: 20240403
  4. COSENTYX [Suspect]
     Active Substance: SECUKINUMAB
     Dosage: UNK (300 MG / 2 ML, 1 AMPOULE A MONTH)
     Route: 058
     Dates: start: 20231203, end: 20240403
  5. ESCITALOPRAM [Concomitant]
     Active Substance: ESCITALOPRAM OXALATE
     Indication: Product used for unknown indication
     Dosage: UNK
     Route: 065
  6. CLOB-X [Concomitant]
     Indication: Product used for unknown indication
     Dosage: UNK
     Route: 065
  7. BETAMETHASONE DIPROPIONATE [Concomitant]
     Active Substance: BETAMETHASONE DIPROPIONATE
     Indication: Product used for unknown indication
     Dosage: UNK
     Route: 065
  8. EBASTINE [Concomitant]
     Active Substance: EBASTINE
     Indication: Product used for unknown indication
     Dosage: UNK
     Route: 065

REACTIONS (5)
  - Scleroderma [Unknown]
  - Erythema nodosum [Unknown]
  - Skin lesion [Recovered/Resolved]
  - Skin plaque [Recovered/Resolved with Sequelae]
  - Skin lesion [Unknown]

NARRATIVE: CASE EVENT DATE: 20240222
